FAERS Safety Report 5242303-7 (Version None)
Quarter: 2007Q1

REPORT INFORMATION
  Report Type: 
  Country: None (occurrence: None)
  Receive Date: 20070216
  Receipt Date: 20070216
  Transmission Date: 20070707
  Serious: Yes (Hospitalization)
  Sender: FDA-Public Use
  Company Number: None

PATIENT
  Age: 70 Year
  Sex: Male

DRUGS (5)
  1. SPIRONOLACTONE [Suspect]
     Indication: DIURETIC THERAPY
     Dosage: 12.5 MG QD
     Dates: start: 20060501
  2. FUROSEMIDE [Suspect]
     Indication: DIURETIC THERAPY
     Dosage: 80 MG BID
     Dates: start: 20010401
  3. ASPIRIN [Concomitant]
  4. DICYCLAMINE [Concomitant]
  5. FLUVASTATIN [Concomitant]

REACTIONS (1)
  - RENAL FAILURE ACUTE [None]
